FAERS Safety Report 20876026 (Version 1)
Quarter: 2022Q2

REPORT INFORMATION
  Report Type: Spontaneous
  Country: US (occurrence: US)
  Receive Date: 20220526
  Receipt Date: 20220526
  Transmission Date: 20220720
  Serious: No
  Sender: FDA-Public Use
  Company Number: US-drreddys-SPO/USA/22/0149969

PATIENT
  Age: 19 Year

DRUGS (1)
  1. ZENATANE [Suspect]
     Active Substance: ISOTRETINOIN
     Indication: Acne
     Dosage: RMA ISSUE DATE: 07 JANUARY 2022 10:30:48, 09 FEBRUARY 2022 12:35:48 PM, 10 MARCH 2022 05:06:36 PM, 1

REACTIONS (1)
  - Treatment noncompliance [Unknown]
